FAERS Safety Report 10265800 (Version 1)
Quarter: 2014Q2

REPORT INFORMATION
  Report Type: Report from Study
  Country: US (occurrence: US)
  Receive Date: 20140627
  Receipt Date: 20140627
  Transmission Date: 20141212
  Serious: Yes (Hospitalization)
  Sender: FDA-Public Use
  Company Number: US-FRI-1000059205

PATIENT
  Age: 13 Year
  Sex: Male
  Weight: 47.62 kg

DRUGS (4)
  1. ASENAPINE [Suspect]
     Indication: BIPOLAR DISORDER
     Dosage: 5 MG
     Route: 048
     Dates: start: 20111014, end: 20120416
  2. ASENAPINE [Suspect]
     Dosage: 5 MG
     Route: 048
     Dates: start: 20120419
  3. ASENAPINE [Suspect]
     Dosage: 0 MG, UNKNOWN
     Dates: start: 20120427
  4. SAPHRIS [Concomitant]
     Indication: BIPOLAR DISORDER
     Dosage: 5 MG
     Route: 048
     Dates: start: 20120419

REACTIONS (3)
  - Accidental overdose [Recovered/Resolved]
  - Somnolence [Recovered/Resolved]
  - Loss of consciousness [Recovered/Resolved]
